FAERS Safety Report 21789339 (Version 4)
Quarter: 2023Q2

REPORT INFORMATION
  Report Type: Report from Study
  Country: US (occurrence: US)
  Receive Date: 20221228
  Receipt Date: 20230413
  Transmission Date: 20230722
  Serious: Yes (Other)
  Sender: FDA-Public Use
  Company Number: US-OTSUKA-2022_052671

PATIENT
  Age: 64 Year
  Sex: Female
  Weight: 71 kg

DRUGS (7)
  1. TOLVAPTAN [Suspect]
     Active Substance: TOLVAPTAN
     Indication: Congenital cystic kidney disease
     Dosage: 15 MG, QD (UPON WAKING/EVERY MORNING)
     Route: 048
     Dates: start: 202209, end: 202212
  2. TOLVAPTAN [Suspect]
     Active Substance: TOLVAPTAN
     Indication: Congenital cystic kidney disease
     Dosage: 15 MG, QD (8 H LATER)
     Route: 048
     Dates: start: 202209, end: 202212
  3. TOLVAPTAN [Suspect]
     Active Substance: TOLVAPTAN
     Dosage: 15 MG, QD
     Route: 048
     Dates: start: 202301
  4. LOSARTAN [Concomitant]
     Active Substance: LOSARTAN
     Indication: Chronic kidney disease
     Dosage: 25 MG, QD
     Dates: start: 201805
  5. LOSARTAN [Concomitant]
     Active Substance: LOSARTAN
     Dosage: TAKE 0.5 TABLET (12.5 MG) DAILY
     Route: 048
     Dates: start: 20230331
  6. CALCIUM CARBONATE [Concomitant]
     Active Substance: CALCIUM CARBONATE
     Indication: Product used for unknown indication
     Dosage: 1000 MG, BID
     Route: 065
  7. CRESTOR [Concomitant]
     Active Substance: ROSUVASTATIN CALCIUM
     Indication: Product used for unknown indication
     Dosage: 5 MG, QD
     Route: 048
     Dates: start: 20230331

REACTIONS (14)
  - Parathyroidectomy [Unknown]
  - Blood parathyroid hormone increased [Not Recovered/Not Resolved]
  - Carbon dioxide decreased [Recovering/Resolving]
  - Urine albumin/creatinine ratio increased [Unknown]
  - Blood alkaline phosphatase increased [Recovered/Resolved]
  - Hypercalcaemia [Unknown]
  - Blood urea increased [Not Recovered/Not Resolved]
  - Blood creatinine increased [Not Recovered/Not Resolved]
  - Glomerular filtration rate decreased [Not Recovered/Not Resolved]
  - Pruritus [Recovering/Resolving]
  - Fatigue [Not Recovered/Not Resolved]
  - Transaminases increased [Recovered/Resolved]
  - Polyuria [Unknown]
  - Underdose [Unknown]

NARRATIVE: CASE EVENT DATE: 20221104
